FAERS Safety Report 5810075-0 (Version None)
Quarter: 2008Q3

REPORT INFORMATION
  Report Type: 
  Country: None (occurrence: None)
  Receive Date: 20080715
  Receipt Date: 20080709
  Transmission Date: 20090109
  Serious: Yes (Other)
  Sender: FDA-Public Use
  Company Number: B0527218A

PATIENT
  Age: 57 Year
  Sex: Male

DRUGS (6)
  1. PAXIL [Suspect]
     Indication: DRUG USE FOR UNKNOWN INDICATION
     Route: 048
  2. DIGOXIN [Concomitant]
     Route: 048
  3. NITRAZEPAM [Concomitant]
     Route: 048
  4. UNKNOWN DRUG [Concomitant]
     Route: 048
  5. SENNOSIDE [Concomitant]
     Route: 048
  6. WARFARIN SODIUM [Concomitant]
     Route: 048

REACTIONS (11)
  - DELUSION [None]
  - DEPRESSED LEVEL OF CONSCIOUSNESS [None]
  - DIZZINESS [None]
  - DYSPHAGIA [None]
  - HALLUCINATION [None]
  - HEAD TITUBATION [None]
  - HYPERHIDROSIS [None]
  - MUSCLE RIGIDITY [None]
  - PYREXIA [None]
  - SEROTONIN SYNDROME [None]
  - SPEECH DISORDER [None]
